FAERS Safety Report 9614009 (Version 2)
Quarter: 2013Q4

REPORT INFORMATION
  Report Type: Spontaneous
  Country: US (occurrence: US)
  Receive Date: 20131011
  Receipt Date: 20131118
  Transmission Date: 20140711
  Serious: No
  Sender: FDA-Public Use
  Company Number: US-B.I. PHARMACEUTICALS,INC./RIDGEFIELD-2013-BI-31085BP

PATIENT
  Age: 57 Year
  Sex: Female
  Weight: 50 kg

DRUGS (15)
  1. COMBIVENT [Suspect]
     Indication: CHRONIC OBSTRUCTIVE PULMONARY DISEASE
     Dosage: STRENGTH: 20 MCG / 100 MCG; DAILY DOSE: 160MCG/800MCG
     Route: 055
     Dates: start: 201305
  2. COMBIVENT [Suspect]
     Dosage: 4 PUF
     Route: 055
     Dates: start: 201305, end: 201310
  3. VERAPAMIL [Concomitant]
     Indication: HYPERTENSION
     Dosage: 90 MG
     Route: 048
     Dates: start: 2000
  4. VERAPAMIL [Concomitant]
     Indication: TACHYCARDIA
  5. POTASSIUM [Concomitant]
     Indication: BLOOD POTASSIUM DECREASED
     Dosage: 40 MEQ
     Route: 048
     Dates: start: 2003
  6. TOPAMAX [Concomitant]
     Indication: EPILEPSY
     Dosage: 200 MG
     Route: 048
     Dates: start: 2011
  7. MIRTAZAPINE [Concomitant]
     Indication: DECREASED APPETITE
     Dosage: 15 MG
     Route: 048
     Dates: start: 1999
  8. PHENOBARB [Concomitant]
     Indication: EPILEPSY
  9. FENOFIBRATE [Concomitant]
     Indication: BLOOD TRIGLYCERIDES INCREASED
     Dosage: 160 MG
     Route: 048
     Dates: start: 2007
  10. FOSAMAX [Concomitant]
     Indication: OSTEOPOROSIS
     Dates: start: 201310
  11. ASPIRIN [Concomitant]
     Indication: TACHYCARDIA
     Dosage: STRENGTH: 5 GRAINS; DAILY DOSE: 5 GRAINS
     Route: 048
     Dates: start: 2001
  12. LEXAPRO [Concomitant]
     Indication: DEPRESSION
     Dosage: 20 MG
     Route: 048
     Dates: start: 2007
  13. LEXAPRO [Concomitant]
     Indication: ANXIETY
  14. SINGULAIR [Concomitant]
     Indication: ASTHMA
     Dosage: 10 MG
     Route: 048
     Dates: start: 2003
  15. CLONAZEPAM [Concomitant]
     Indication: EPILEPSY
     Dosage: 1 MG
     Route: 048
     Dates: start: 1998

REACTIONS (3)
  - Asthma [Not Recovered/Not Resolved]
  - Overdose [Not Recovered/Not Resolved]
  - Dyspnoea [Recovered/Resolved]
